FAERS Safety Report 8357561-X (Version None)
Quarter: 2012Q2

REPORT INFORMATION
  Report Type: 
  Country: None (occurrence: None)
  Receive Date: 20120510
  Receipt Date: 20120424
  Transmission Date: 20120825
  Serious: Yes (Other)
  Sender: FDA-Public Use
  Company Number: 2012RR-54047

PATIENT
  Age: 22 Year
  Sex: Male

DRUGS (2)
  1. AMOXICILLIN [Suspect]
     Indication: PRODUCT USED FOR UNKNOWN INDICATION
     Dosage: ORAL
     Route: 048
     Dates: start: 20100101
  2. AMOXICILLIN [Suspect]
     Indication: PHARYNGOTONSILLITIS
     Dates: start: 20090101

REACTIONS (2)
  - TONSILLITIS [None]
  - HENOCH-SCHONLEIN PURPURA [None]
